FAERS Safety Report 15997612 (Version 2)
Quarter: 2019Q1

REPORT INFORMATION
  Report Type: Spontaneous
  Country: US (occurrence: US)
  Receive Date: 20190222
  Receipt Date: 20190311
  Transmission Date: 20190418
  Serious: No
  Sender: FDA-Public Use
  Company Number: US-009507513-1902USA009160

PATIENT
  Sex: Female

DRUGS (1)
  1. NEXPLANON [Suspect]
     Active Substance: ETONOGESTREL
     Dosage: 1 IMPLANT (PLACED 3 TO 5CM BELOW THE SULCUS)
     Route: 059

REACTIONS (3)
  - Pain in extremity [Unknown]
  - Medical device site discomfort [Unknown]
  - Implant site pain [Unknown]
